FAERS Safety Report 8124068-4 (Version None)
Quarter: 2012Q1

REPORT INFORMATION
  Report Type: 
  Country: None (occurrence: None)
  Receive Date: 20120209
  Receipt Date: 20120207
  Transmission Date: 20120608
  Serious: No
  Sender: FDA-Public Use
  Company Number: US-PFIZER INC-2012033924

PATIENT
  Sex: Female
  Weight: 70.295 kg

DRUGS (8)
  1. CELEBREX [Suspect]
     Dosage: UNK
     Route: 048
     Dates: end: 20111101
  2. AMLODIPINE [Concomitant]
     Dosage: UNK
  3. LOSARTAN [Concomitant]
     Dosage: UNK
  4. PAROXETINE [Concomitant]
     Dosage: UNK
  5. COUMADIN [Concomitant]
     Dosage: UNK
  6. ZETIA [Concomitant]
     Dosage: UNK
  7. CELEBREX [Suspect]
     Indication: ARTHRITIS
     Dosage: 100 MG, 2X/DAY
     Route: 048
     Dates: start: 20020101
  8. CRESTOR [Concomitant]
     Dosage: UNK

REACTIONS (1)
  - GASTROINTESTINAL ULCER [None]
